FAERS Safety Report 6944552-6 (Version None)
Quarter: 2010Q3

REPORT INFORMATION
  Report Type: 
  Country: None (occurrence: None)
  Receive Date: 20100827
  Receipt Date: 20100818
  Transmission Date: 20110219
  Serious: Yes (Hospitalization, Other)
  Sender: FDA-Public Use
  Company Number: US-ELI_LILLY_AND_COMPANY-US201008005953

PATIENT
  Sex: Male

DRUGS (2)
  1. HUMALOG MIX 75/25 [Suspect]
     Indication: DIABETES MELLITUS
     Dosage: 58 U, EACH MORNING
  2. HUMALOG MIX 75/25 [Suspect]
     Dosage: 24 U, EACH EVENING

REACTIONS (6)
  - BLOOD GLUCOSE INCREASED [None]
  - DIALYSIS [None]
  - DRUG INEFFECTIVE [None]
  - INFECTION [None]
  - RENAL DISORDER [None]
  - RENAL TRANSPLANT [None]
